FAERS Safety Report 24736772 (Version 1)
Quarter: 2024Q4

REPORT INFORMATION
  Report Type: Spontaneous
  Country: US (occurrence: US)
  Receive Date: 20241216
  Receipt Date: 20241216
  Transmission Date: 20250114
  Serious: No
  Sender: ALVOGEN
  Company Number: US-ALVOGEN-2023092602

PATIENT
  Sex: Female

DRUGS (1)
  1. FENTANYL [Suspect]
     Active Substance: FENTANYL
     Indication: Back pain
     Dosage: EXPIRATION DATE: UU-AUG-2026?STRENGTH: FENTANYL 25 MCG/HR
     Route: 062
     Dates: start: 20231025

REACTIONS (6)
  - Nightmare [Unknown]
  - Hyperhidrosis [Unknown]
  - Pruritus [Unknown]
  - Headache [Unknown]
  - Device malfunction [Unknown]
  - Device adhesion issue [Unknown]

NARRATIVE: CASE EVENT DATE: 20231114
